FAERS Safety Report 10957512 (Version 2)
Quarter: 2015Q2

REPORT INFORMATION
  Report Type: Spontaneous
  Country: AU (occurrence: AU)
  Receive Date: 20150326
  Receipt Date: 20150511
  Transmission Date: 20150821
  Serious: Yes (Other)
  Sender: FDA-Public Use
  Company Number: AU-009507513-1503AUS008810

PATIENT
  Sex: Female

DRUGS (1)
  1. IMPLANON [Suspect]
     Active Substance: ETONOGESTREL
     Dosage: DOSE UNSPEC
     Route: 059

REACTIONS (2)
  - Device breakage [Recovered/Resolved]
  - Device kink [Recovered/Resolved]
